FAERS Safety Report 11165889 (Version 1)
Quarter: 2015Q2

REPORT INFORMATION
  Report Type: Report from Study
  Country: US (occurrence: US)
  Receive Date: 20150604
  Receipt Date: 20150604
  Transmission Date: 20150821
  Serious: Yes (Other)
  Sender: FDA-Public Use
  Company Number: US-GILEAD-2015-0156272

PATIENT
  Age: 61 Year
  Sex: Male

DRUGS (4)
  1. TRAZODONE [Interacting]
     Active Substance: TRAZODONE HYDROCHLORIDE
     Indication: INSOMNIA
     Dosage: 100 MG, UNK
     Route: 048
     Dates: start: 201412
  2. AZOR                               /00595201/ [Concomitant]
     Active Substance: ALPRAZOLAM
     Indication: HYPERTENSION
  3. BENICAR [Concomitant]
     Active Substance: OLMESARTAN MEDOXOMIL
     Indication: HYPERTENSION
     Route: 048
  4. LEDIPASVIR/SOFOSBUVIR [Suspect]
     Active Substance: LEDIPASVIR\SOFOSBUVIR
     Indication: CHRONIC HEPATITIS C
     Dosage: 1 DF, QD
     Route: 048
     Dates: start: 201504

REACTIONS (4)
  - Loss of consciousness [Unknown]
  - Fatigue [Unknown]
  - Disorientation [Unknown]
  - Confusional state [Unknown]

NARRATIVE: CASE EVENT DATE: 201505
